FAERS Safety Report 6090896-2 (Version None)
Quarter: 2009Q1

REPORT INFORMATION
  Report Type: 
  Country: None (occurrence: None)
  Receive Date: 20090220
  Receipt Date: 20081028
  Transmission Date: 20090719
  Serious: Yes (Death)
  Sender: FDA-Public Use
  Company Number: 2008-185926-NL

PATIENT
  Age: 40 Year
  Sex: Female

DRUGS (6)
  1. MIRTAZAPINE [Suspect]
     Indication: DEPRESSION
     Dosage: 15 MG/30 MG
     Dates: start: 20080728, end: 20080801
  2. MIRTAZAPINE [Suspect]
     Indication: DEPRESSION
     Dosage: 15 MG/30 MG
     Dates: start: 20080801
  3. KETOPROFEN [Concomitant]
  4. VITAMIN B COMPLEX CAP [Concomitant]
  5. ANTI INFLAMMATORY MEDICINE [Concomitant]
  6. MIRTAZAPINE [Concomitant]

REACTIONS (9)
  - ANOREXIA [None]
  - ASTHENIA [None]
  - COMPLETED SUICIDE [None]
  - DEPRESSION [None]
  - DRUG INEFFECTIVE [None]
  - FATIGUE [None]
  - FEELING ABNORMAL [None]
  - INSOMNIA [None]
  - REFUSAL OF TREATMENT BY PATIENT [None]
